FAERS Safety Report 4685101-5 (Version None)
Quarter: 2005Q2

REPORT INFORMATION
  Report Type: 
  Country: None (occurrence: None)
  Receive Date: 20050531
  Receipt Date: 20050310
  Transmission Date: 20051028
  Serious: No
  Sender: FDA-Public Use
  Company Number: FABR-11062

PATIENT
  Age: 44 Year
  Sex: Male
  Weight: 60.782 kg

DRUGS (7)
  1. FABRAZYME [Suspect]
     Indication: FABRY'S DISEASE
     Dosage: 70 MG Q2WKS IV
     Route: 042
     Dates: start: 20031209
  2. FABRAZYME [Suspect]
     Indication: FABRY'S DISEASE
     Dosage: 70 MG Q2WKS IV
     Route: 042
     Dates: start: 20030715, end: 20031021
  3. ZOFRAN [Concomitant]
  4. METOCLOPRAMIDE [Concomitant]
  5. LIPRAM CR [Concomitant]
  6. PERCOCET [Concomitant]
  7. SANDIMMUNE [Concomitant]

REACTIONS (2)
  - GASTROINTESTINAL DISORDER [None]
  - PAIN IN EXTREMITY [None]
